FAERS Safety Report 9106198 (Version 1)
Quarter: 2013Q1

REPORT INFORMATION
  Report Type: Spontaneous
  Country: NZ (occurrence: NZ)
  Receive Date: 20130221
  Receipt Date: 20130221
  Transmission Date: 20140127
  Serious: Yes (Other)
  Sender: FDA-Public Use
  Company Number: PHHY2013NZ016463

PATIENT
  Age: 7 Year
  Sex: Female

DRUGS (1)
  1. METHYLPHENIDATE [Suspect]
     Route: 048

REACTIONS (5)
  - Suicidal ideation [Unknown]
  - Affect lability [Unknown]
  - Apathy [Unknown]
  - Lethargy [Unknown]
  - Decreased appetite [Unknown]
